FAERS Safety Report 9253940 (Version 1)
Quarter: 2013Q2

REPORT INFORMATION
  Report Type: Spontaneous
  Country: US (occurrence: US)
  Receive Date: 20130425
  Receipt Date: 20130425
  Transmission Date: 20140414
  Serious: Yes (Hospitalization)
  Sender: FDA-Public Use
  Company Number: US-BAYER-2013-051402

PATIENT
  Age: 22 Year
  Sex: Female
  Weight: 53.97 kg

DRUGS (14)
  1. YAZ [Suspect]
  2. YASMIN [Suspect]
  3. OCELLA [Suspect]
  4. ADDERALL [Concomitant]
     Dosage: 10 MG, UNK
     Dates: start: 20090518
  5. FIORICET [Concomitant]
     Indication: HEADACHE
  6. REGLAN [Concomitant]
  7. SKELAXIN [Concomitant]
     Indication: HEADACHE
  8. PREDNISONE [Concomitant]
  9. BUTALBITAL [Concomitant]
  10. DEXAMETHASONE [Concomitant]
  11. CLONIDINE [Concomitant]
     Dosage: 0.1 MG, UNK
     Dates: start: 20090330
  12. MEDROL [Concomitant]
  13. SUDAFED [Concomitant]
     Indication: ANTIALLERGIC THERAPY
  14. CLARITEN [Concomitant]
     Indication: ANTIALLERGIC THERAPY

REACTIONS (1)
  - Intracranial venous sinus thrombosis [Recovering/Resolving]
